FAERS Safety Report 7328404-8 (Version None)
Quarter: 2011Q1

REPORT INFORMATION
  Report Type: 
  Country: None (occurrence: None)
  Receive Date: 20110224
  Receipt Date: 20110224
  Transmission Date: 20110831
  Serious: No
  Sender: FDA-Public Use
  Company Number: None

PATIENT
  Sex: Male

DRUGS (2)
  1. LYRICA [Suspect]
     Dosage: 200 MG PO EVERY DAY
     Route: 048
  2. LISINOPRIL [Suspect]
     Dosage: 10MG

REACTIONS (6)
  - HYPERSENSITIVITY [None]
  - LIP SWELLING [None]
  - SWELLING FACE [None]
  - AURICULAR SWELLING [None]
  - FEELING HOT [None]
  - LIP DISORDER [None]
